FAERS Safety Report 6502438-5 (Version None)
Quarter: 2009Q4

REPORT INFORMATION
  Report Type: 
  Country: None (occurrence: None)
  Receive Date: 20091204
  Receipt Date: 20091118
  Transmission Date: 20100525
  Serious: Yes (Other)
  Sender: FDA-Public Use
  Company Number: 2009SA005960

PATIENT
  Age: 31 Year
  Sex: Male

DRUGS (12)
  1. FLUDARABINE PROSPHATE [Suspect]
     Indication: ACUTE MYELOID LEUKAEMIA
     Dosage: 25 MILLIGRAM(S) /SQUARE METER; DAILY; UNKNOWN
     Dates: start: 20080101
  2. GEMTUZUMAB OZOGAMICIN (GEMTUZUMAB OZOGAMICIN) [Suspect]
     Indication: ACUTE MYELOID LEUKAEMIA
     Dosage: 6 MILLIGRAM(S) /SQUARE METER; DAILY; UNKNOWN; 3 MILLIGRAM(S) / SQUARE METER, DAILY, UNKNOWN
     Dates: start: 20080101
  3. GEMTUZUMAB OZOGAMICIN (GEMTUZUMAB OZOGAMICIN) [Suspect]
     Indication: ACUTE MYELOID LEUKAEMIA
     Dosage: 6 MILLIGRAM(S) /SQUARE METER; DAILY; UNKNOWN; 3 MILLIGRAM(S) / SQUARE METER, DAILY, UNKNOWN
     Dates: start: 20080101
  4. MELPHALAN (MELPHALAN) [Suspect]
     Indication: ACUTE MYELOID LEUKAEMIA
     Dosage: 40 MILLIGRAM(S) / SQUARE METER; DAILY; UNKNOWN
     Dates: start: 20080101
  5. CYTARABINE [Suspect]
     Indication: ACUTE MYELOID LEUKAEMIA
     Dosage: 3 GRAM (S), DAILY; UNKNOWN
     Dates: start: 20080101, end: 20080101
  6. ANTINEOPLASTIC AGENTS [Concomitant]
  7. CYCLOPHOSPHAMIDE [Concomitant]
  8. CYCLOSPORINE [Concomitant]
  9. MYCOPHENOLATE MOFETIL [Concomitant]
  10. HEPARIN [Concomitant]
  11. PROSTAGLANDIN E1 [Concomitant]
  12. ANTITHROMBIN III [Concomitant]

REACTIONS (12)
  - ABDOMINAL PAIN UPPER [None]
  - ACUTE MYELOID LEUKAEMIA [None]
  - ASCITES [None]
  - COAGULOPATHY [None]
  - HEPATOMEGALY [None]
  - HYPERBILIRUBINAEMIA [None]
  - MALIGNANT NEOPLASM PROGRESSION [None]
  - NEUTROPHIL COUNT DECREASED [None]
  - PLATELET DISORDER [None]
  - RETROGRADE PORTAL VEIN FLOW [None]
  - TRANSAMINASES INCREASED [None]
  - TREATMENT FAILURE [None]
